FAERS Safety Report 8144154-2 (Version None)
Quarter: 2012Q1

REPORT INFORMATION
  Report Type: 
  Country: None (occurrence: None)
  Receive Date: 20120217
  Receipt Date: 20120214
  Transmission Date: 20120608
  Serious: Yes (Other)
  Sender: FDA-Public Use
  Company Number: US-PFIZER INC-2012040695

PATIENT
  Sex: Female
  Weight: 95.238 kg

DRUGS (6)
  1. DILANTIN [Suspect]
     Indication: EPILEPSY
     Dosage: 100 MG IN MORNING AND 200 MG AT NIGHT
     Dates: start: 19710101
  2. AMITRIPTYLINE [Concomitant]
     Dosage: 25 MG, UNK
  3. CENTRUM [Concomitant]
     Dosage: UNK
  4. ZOLOFT [Concomitant]
     Dosage: UNK
  5. LAMICTAL [Concomitant]
     Dosage: 400 MG, 2X/DAY
  6. VIMPAT [Concomitant]
     Dosage: 75 MG, 2X/DAY

REACTIONS (2)
  - DRUG LEVEL CHANGED [None]
  - EPILEPSY [None]
